FAERS Safety Report 9208344 (Version 1)
Quarter: 2013Q2

REPORT INFORMATION
  Report Type: Spontaneous
  Country: US (occurrence: US)
  Receive Date: 20130404
  Receipt Date: 20130404
  Transmission Date: 20140414
  Serious: Yes (Other)
  Sender: FDA-Public Use
  Company Number: US-AMGEN-USASP2013022275

PATIENT
  Age: 53 Year
  Sex: Female

DRUGS (1)
  1. ENBREL [Suspect]
     Indication: PRODUCT USED FOR UNKNOWN INDICATION
     Dosage: 25 MG, 2 TIMES/WK (EVERY TUESDAY AND FRIDAY))
     Route: 058

REACTIONS (4)
  - Ulcerative keratitis [Unknown]
  - Diverticulitis [Unknown]
  - Knee arthroplasty [Unknown]
  - Pertussis [Not Recovered/Not Resolved]
